FAERS Safety Report 7013979-9 (Version None)
Quarter: 2010Q3

REPORT INFORMATION
  Report Type: 
  Country: None (occurrence: None)
  Receive Date: 20100926
  Receipt Date: 20100915
  Transmission Date: 20110219
  Serious: Yes (Other)
  Sender: FDA-Public Use
  Company Number: PHHY2010US61400

PATIENT
  Sex: Female

DRUGS (4)
  1. RECLAST [Suspect]
     Dosage: UNK
     Dates: start: 20080429
  2. RECLAST [Suspect]
     Dosage: UNK
     Dates: start: 20100802
  3. LISINOPRIL [Concomitant]
  4. VERAPAMIL [Concomitant]

REACTIONS (6)
  - ABDOMINAL DISCOMFORT [None]
  - DECREASED APPETITE [None]
  - DEPRESSION [None]
  - FATIGUE [None]
  - GASTROOESOPHAGEAL REFLUX DISEASE [None]
  - WEIGHT DECREASED [None]
